FAERS Safety Report 9568724 (Version 1)
Quarter: 2013Q3

REPORT INFORMATION
  Report Type: Spontaneous
  Country: US (occurrence: US)
  Receive Date: 20130930
  Receipt Date: 20130930
  Transmission Date: 20140515
  Serious: No
  Sender: FDA-Public Use
  Company Number: US-AMGEN-USASP2013061463

PATIENT
  Age: 56 Year
  Sex: Female

DRUGS (12)
  1. ENBREL [Suspect]
     Indication: PRODUCT USED FOR UNKNOWN INDICATION
     Dosage: 50 MG, TWICE A WEEK
     Route: 058
  2. VOLTAREN                           /00372301/ [Concomitant]
     Dosage: 100 MG, UNK
  3. CLONAZEPAM [Concomitant]
     Dosage: 2 MG, UNK
  4. HYDROCHLOROTH [Concomitant]
     Dosage: 12.5 MG, UNK
  5. VITAMIN D                          /00107901/ [Concomitant]
     Dosage: 50000 UNIT, UNK
  6. MECLIZINE                          /00072801/ [Concomitant]
     Dosage: 25 MG, UNK
  7. ARMOUR THYROID [Concomitant]
     Dosage: 120 MG, UNK
  8. BABY ASPIRIN [Concomitant]
     Dosage: 81 MG, UNK
  9. NUVIGIL [Concomitant]
     Dosage: 150 MG, UNK
  10. MELATONIN [Concomitant]
     Dosage: 10 MG, UNK
  11. BIOTIN [Concomitant]
     Dosage: 5000 UNIT, UNK
  12. METFORMIN ER [Concomitant]
     Dosage: 750 MG, UNK

REACTIONS (1)
  - Pain [Unknown]
